FAERS Safety Report 18622606 (Version 1)
Quarter: 2020Q4

REPORT INFORMATION
  Report Type: Spontaneous
  Country: GB (occurrence: GB)
  Receive Date: 20201216
  Receipt Date: 20201216
  Transmission Date: 20210114
  Serious: Yes (Other)
  Sender: FDA-Public Use
  Company Number: GB-PFIZER INC-2020490804

PATIENT
  Age: 78 Year
  Sex: Female
  Weight: 58 kg

DRUGS (12)
  1. TOLTERODINE TARTRATE. [Suspect]
     Active Substance: TOLTERODINE TARTRATE
     Dosage: 4 MG, 1X/DAY
     Dates: start: 20200828
  2. AMITRIPTYLINE HYDROCHLORIDE. [Concomitant]
     Active Substance: AMITRIPTYLINE HYDROCHLORIDE
     Dosage: UNK
     Dates: start: 20190723
  3. APIXABAN [Concomitant]
     Active Substance: APIXABAN
     Dosage: 2 DF, 1X/DAY FOR 5 WEEKS THEN STOP
     Dates: start: 20201015, end: 20201119
  4. ADCAL [CALCIUM CARBONATE] [Concomitant]
     Dosage: 2 DF, 1X/DAY
     Dates: start: 20200210
  5. LOSARTAN. [Concomitant]
     Active Substance: LOSARTAN
     Dosage: 1 DF, 1X/DAY
     Dates: start: 20190723
  6. PIROXICAM. [Concomitant]
     Active Substance: PIROXICAM
     Dosage: APPLY TWO TO THREE TIMES DAILY
     Dates: start: 20190723
  7. ATORVASTATIN [Concomitant]
     Active Substance: ATORVASTATIN
     Dosage: 1 DF, 1X/DAY
     Dates: start: 20190723
  8. AMLODIPINE [Concomitant]
     Active Substance: AMLODIPINE BESYLATE
     Dosage: 1 DF, 1X/DAY
     Dates: start: 20190723
  9. COCODAMOL [Concomitant]
     Active Substance: ACETAMINOPHEN\CODEINE PHOSPHATE
     Dosage: TAKEN ONCE OR TWICE FOUR TIMES A DAY
     Dates: start: 20190918
  10. SALBUTAMOL [Concomitant]
     Active Substance: ALBUTEROL
     Dosage: AS DIRECTED
     Dates: start: 20190723
  11. FLUTICASONE. [Concomitant]
     Active Substance: FLUTICASONE
     Dosage: 4 PUFFS ONCE DAILY
     Dates: start: 20190723
  12. BECLOMETASONE [Concomitant]
     Active Substance: BECLOMETHASONE DIPROPIONATE
     Dosage: 4 PUFFS ONCE DAILY
     Dates: start: 20190723

REACTIONS (1)
  - Pruritus [Unknown]

NARRATIVE: CASE EVENT DATE: 20201123
